FAERS Safety Report 25150128 (Version 1)
Quarter: 2025Q2

REPORT INFORMATION
  Report Type: Report from Study
  Country: US (occurrence: US)
  Receive Date: 20250402
  Receipt Date: 20250402
  Transmission Date: 20250717
  Serious: No
  Sender: VANDA PHARMACEUTICALS
  Company Number: US-VANDA PHARMACEUTICALS, INC-2024PONUS001122

PATIENT
  Sex: Female
  Weight: 82.086 kg

DRUGS (2)
  1. PONESIMOD [Suspect]
     Active Substance: PONESIMOD
     Indication: Multiple sclerosis
     Dosage: 20 MILLIGRAM, QD ONE TABLET BY MOUTH DAILY
     Route: 048
     Dates: start: 202301
  2. ESCITALOPRAM OXALATE [Concomitant]
     Active Substance: ESCITALOPRAM OXALATE
     Indication: Product used for unknown indication

REACTIONS (2)
  - Frustration tolerance decreased [Unknown]
  - Gait disturbance [Recovering/Resolving]
